FAERS Safety Report 4480717-3 (Version None)
Quarter: 2004Q4

REPORT INFORMATION
  Report Type: 
  Country: None (occurrence: None)
  Receive Date: 20041019
  Receipt Date: 20041001
  Transmission Date: 20050328
  Serious: Yes (Death)
  Sender: FDA-Public Use
  Company Number: DSA_70429_2004

PATIENT
  Age: 26 Year
  Sex: 0

DRUGS (3)
  1. CLONIDINE HCL [Suspect]
     Dosage: DF
  2. VENLAFAXINE HCL [Suspect]
     Dosage: DF
  3. MIRTAZAPINE [Suspect]
     Dosage: DF    PO
     Route: 048

REACTIONS (1)
  - COMPLETED SUICIDE [None]
